FAERS Safety Report 8516471 (Version 2)
Quarter: 2012Q4

REPORT INFORMATION
  Report Type: 
  Country: US (occurrence: US)
  Receive Date: 20120417
  Receipt Date: 20121002
  Transmission Date: 20130627
  Serious: No
  Sender: FDA-Public Use
  Company Number: US-ASTRAZENECA-2011SE44057

PATIENT
  Sex: Female

DRUGS (5)
  1. NEXIUM [Suspect]
     Route: 048
  2. PRILOSEC [Suspect]
     Route: 048
  3. CIMETIDINE [Suspect]
     Route: 065
  4. CISAPRIDE [Suspect]
     Route: 065
  5. PEPCID AC [Suspect]
     Route: 065

REACTIONS (6)
  - Dyspepsia [Unknown]
  - Injury [Unknown]
  - Gastrooesophageal reflux disease [Unknown]
  - Vomiting [Unknown]
  - Drug ineffective [None]
  - Drug dose omission [Unknown]
